FAERS Safety Report 7157434-4 (Version None)
Quarter: 2010Q4

REPORT INFORMATION
  Report Type: 
  Country: None (occurrence: None)
  Receive Date: 20101214
  Receipt Date: 20101208
  Transmission Date: 20110411
  Serious: Yes (Hospitalization)
  Sender: FDA-Public Use
  Company Number: A0894629A

PATIENT
  Age: 53 Year
  Sex: Female
  Weight: 93.2 kg

DRUGS (9)
  1. MELPHALAN HYDROCHLORIDE [Suspect]
     Indication: MULTIPLE MYELOMA
     Dosage: 395MG SINGLE DOSE
     Route: 042
     Dates: start: 20101018, end: 20101018
  2. AMLODIPINE [Concomitant]
     Indication: HYPERTENSION
     Dosage: 5MG PER DAY
     Route: 048
  3. K-DUR [Concomitant]
     Dosage: 10MEQ PER DAY
     Route: 048
  4. VYTORIN [Concomitant]
     Dosage: 1TAB PER DAY
     Route: 048
  5. LASIX [Concomitant]
     Indication: HYPERTENSION
     Dosage: 40MG PER DAY
     Route: 048
  6. BENAZEPRIL [Concomitant]
     Indication: HYPERTENSION
     Dosage: 20MG PER DAY
     Route: 048
  7. WELLBUTRIN XL [Concomitant]
     Indication: DEPRESSION
     Dosage: 300MG PER DAY
     Route: 048
  8. SOMA [Concomitant]
     Indication: BACK PAIN
     Dosage: 350MG FOUR TIMES PER DAY
     Route: 048
  9. XANAX [Concomitant]
     Indication: ANXIETY
     Dosage: 1MG TWICE PER DAY
     Route: 048

REACTIONS (3)
  - FEBRILE NEUTROPENIA [None]
  - MUCOSAL INFLAMMATION [None]
  - NEUTROPHIL COUNT DECREASED [None]
